FAERS Safety Report 10682274 (Version 1)
Quarter: 2014Q4

REPORT INFORMATION
  Report Type: Spontaneous
  Country: FR (occurrence: None)
  Receive Date: 20141224
  Receipt Date: 20141224
  Transmission Date: 20150529
  Serious: Yes (Other)
  Sender: FDA-Public Use
  Company Number: 20141225

PATIENT
  Age: 65 Year
  Sex: Male

DRUGS (6)
  1. FOSAVANCE (ALENDRONIC ACID, COLECALCIFEROL) [Concomitant]
  2. TEMERIT / NEBIVOLOL [Concomitant]
  3. KARDEGIC /LYSINE ACETYLSALICYLATE [Concomitant]
  4. METOJECT [Suspect]
     Active Substance: METHOTREXATE SODIUM
     Indication: PSORIATIC ARTHROPATHY
     Dosage: SOLUTION FOR INJECTION IN PRE-FILED SYRINGE //SUBCUTANEOUS ?1 X 15 MILLIGRAM IN 1 WEEK ?EVERY MONDAY
     Route: 058
     Dates: start: 201406
  5. SPECIAFOLDINE (FOLIC ACID) [Concomitant]
     Active Substance: FOLIC ACID
  6. INEXIUM (ESOMEPRAZOL) [Concomitant]

REACTIONS (7)
  - Diverticulum [None]
  - Colitis [None]
  - Nausea [None]
  - Migraine [None]
  - Balance disorder [None]
  - Abdominal pain [None]
  - Syncope [None]

NARRATIVE: CASE EVENT DATE: 2014
